FAERS Safety Report 8922609 (Version 2)
Quarter: 2013Q1

REPORT INFORMATION
  Report Type: Report from Study
  Country: JP (occurrence: JP)
  Receive Date: 20121123
  Receipt Date: 20130328
  Transmission Date: 20140127
  Serious: Yes (Hospitalization, Other)
  Sender: FDA-Public Use
  Company Number: JP-PFIZER INC-2012288512

PATIENT
  Age: 72 Year
  Sex: Male
  Weight: 60 kg

DRUGS (9)
  1. CRIZOTINIB [Suspect]
     Indication: NON-SMALL CELL LUNG CANCER
     Dosage: 250 MG, 2X/DAY
     Route: 048
     Dates: start: 20120711
  2. GLYCERIN [Suspect]
     Indication: CONSTIPATION
     Dosage: UNK
     Route: 054
     Dates: start: 20120718
  3. MAGMITT [Concomitant]
     Dosage: 330 MG, 2X/DAY
     Route: 048
     Dates: end: 20120903
  4. PRIMPERAN [Concomitant]
     Dosage: 5 MG, 3X/DAY
     Route: 048
     Dates: end: 20120720
  5. URSO [Concomitant]
     Dosage: 200 MG, 3X/DAY
     Route: 048
  6. ADONA [Concomitant]
     Dosage: 30 MG, 3X/DAY
     Route: 048
  7. TRANSAMIN [Concomitant]
     Dosage: 250 MG, 3X/DAY
     Route: 048
  8. METHYCOBAL [Concomitant]
     Dosage: 500 UG, 3X/DAY
     Route: 048
  9. PARIET [Concomitant]
     Dosage: 10 MG, 1X/DAY
     Route: 048

REACTIONS (2)
  - Abdominal pain [Recovered/Resolved]
  - Myasthenia gravis [Recovering/Resolving]
